FAERS Safety Report 10645695 (Version 2)
Quarter: 2014Q4

REPORT INFORMATION
  Report Type: Spontaneous
  Country: IE (occurrence: None)
  Receive Date: 20141209
  Receipt Date: 20141222
  Transmission Date: 20150529
  Serious: Yes (Other)
  Sender: FDA-Public Use
  Company Number: FK201405812

PATIENT
  Age: 60 Year
  Sex: Female

DRUGS (9)
  1. METFORMIN [Concomitant]
     Active Substance: METFORMIN HYDROCHLORIDE
  2. CYTARABINE (MANUFACTURER UNKNOWN) (CYTARABINE) (CYTARABINE) [Suspect]
     Active Substance: CYTARABINE
     Indication: ACUTE MYELOID LEUKAEMIA
     Dosage: CYCLICAL
  3. ROSUVASTATIN CALCIUM. [Concomitant]
     Active Substance: ROSUVASTATIN CALCIUM
  4. LEVOTHYROXINE SODIUM. [Concomitant]
     Active Substance: LEVOTHYROXINE SODIUM
  5. FAMCICLOVIR (FAMCICLOVIR) [Concomitant]
  6. DAUNORUBICIN (DAUNORUBICIN) (DAUNORUBICIN) [Suspect]
     Active Substance: DAUNORUBICIN
     Indication: ACUTE MYELOID LEUKAEMIA
     Dosage: CYCLICAL
  7. ASPIRIN. [Concomitant]
     Active Substance: ASPIRIN
  8. DEXAMETHASONE (DEXAMETHASONE) [Concomitant]
     Active Substance: DEXAMETHASONE
  9. INSULIN [Concomitant]
     Active Substance: INSULIN NOS

REACTIONS (2)
  - Hidradenitis [None]
  - Sepsis [None]
